APPROVED DRUG PRODUCT: ULTRAVIST 370
Active Ingredient: IOPROMIDE
Strength: 76.9%
Dosage Form/Route: INJECTABLE;INJECTION
Application: N020220 | Product #001
Applicant: BAYER HEALTHCARE PHARMACEUTICALS INC
Approved: May 10, 1995 | RLD: Yes | RS: Yes | Type: RX